FAERS Safety Report 8822967 (Version 2)
Quarter: 2013Q1

REPORT INFORMATION
  Report Type: Spontaneous
  Country: JP (occurrence: JP)
  Receive Date: 20121003
  Receipt Date: 20130226
  Transmission Date: 20140127
  Serious: Yes (Other)
  Sender: FDA-Public Use
  Company Number: JP-ROCHE-1136106

PATIENT
  Age: 76 Year
  Sex: Male
  Weight: 73 kg

DRUGS (14)
  1. VESANOID [Suspect]
     Indication: ACUTE PROMYELOCYTIC LEUKAEMIA
     Dosage: DOSAGE DURING A DAY: 3 AND 3 AND 2 IN EVENING IN DAYTIME IN MORNING
     Route: 048
     Dates: start: 20120417, end: 20120506
  2. VESANOID [Suspect]
     Indication: ACUTE PROMYELOCYTIC LEUKAEMIA
     Dosage: DOSAGE DURING A DAY: 3 AND 3 AND 2 IN EVENING IN DAYTIME IN MORNING
     Route: 048
     Dates: start: 20120524
  3. CEFEPIME DIHYDROCHLORIDE [Concomitant]
     Route: 065
     Dates: start: 20120417, end: 20120505
  4. MEROPEN (JAPAN) [Concomitant]
     Route: 065
     Dates: start: 20120507, end: 20120514
  5. ZOSYN [Concomitant]
     Route: 065
     Dates: start: 20120516, end: 20120526
  6. TEICOPLANIN [Concomitant]
     Route: 065
     Dates: start: 20120516
  7. IMIPENEM-CILASTATIN SODIUM [Concomitant]
     Route: 065
     Dates: start: 20120519
  8. VANCOMYCIN HYDROCHLORIDE [Concomitant]
     Route: 065
     Dates: start: 20120519
  9. MUCOSTA [Concomitant]
     Route: 048
     Dates: start: 20120417
  10. POLYMYXIN B SULFATE [Concomitant]
     Dosage: DOSE: (IU(1000000S))
     Route: 048
     Dates: start: 20120417
  11. BAKTAR [Concomitant]
     Indication: PROPHYLAXIS
     Route: 048
     Dates: start: 20120417
  12. TRISENOX [Concomitant]
     Indication: ACUTE PROMYELOCYTIC LEUKAEMIA
     Route: 041
     Dates: start: 20120516, end: 20120523
  13. FLUCONAZOLE [Concomitant]
     Indication: PROPHYLAXIS
     Route: 048
     Dates: start: 20120417
  14. GASMOTIN [Concomitant]
     Route: 048
     Dates: start: 20120525

REACTIONS (5)
  - Tubulointerstitial nephritis [Recovering/Resolving]
  - Urinary retention [Unknown]
  - Retinoic acid syndrome [Unknown]
  - Disseminated intravascular coagulation [Unknown]
  - Drug hypersensitivity [Recovered/Resolved]
